FAERS Safety Report 8343539-9 (Version None)
Quarter: 2012Q2

REPORT INFORMATION
  Report Type: 
  Country: None (occurrence: None)
  Receive Date: 20120508
  Receipt Date: 20120502
  Transmission Date: 20120825
  Serious: Yes (Death)
  Sender: FDA-Public Use
  Company Number: IT-PFIZER INC-2012089830

PATIENT
  Age: 53 Year
  Sex: Male

DRUGS (4)
  1. ETOPOSIDE [Suspect]
     Indication: B-CELL LYMPHOMA
     Dosage: 167 MG, 1X/DAY
     Route: 042
     Dates: start: 20120211, end: 20120214
  2. CYTARABINE [Suspect]
     Indication: B-CELL LYMPHOMA
     Dosage: 668 MG, 1X/DAY
     Route: 042
     Dates: start: 20120211, end: 20120214
  3. ALKERAN [Suspect]
     Indication: B-CELL LYMPHOMA
     Dosage: 234 MG, TOTAL DOSE
     Route: 042
     Dates: start: 20120215, end: 20120215
  4. CARMUSTINE [Suspect]
     Indication: B-CELL LYMPHOMA
     Dosage: 500 MG, TOTAL DOSE
     Route: 042
     Dates: start: 20120210, end: 20120210

REACTIONS (2)
  - SEPTIC SHOCK [None]
  - LUNG INFECTION PSEUDOMONAL [None]
